APPROVED DRUG PRODUCT: NEO-FRADIN
Active Ingredient: NEOMYCIN SULFATE
Strength: EQ 87.5MG BASE/5ML
Dosage Form/Route: SOLUTION;ORAL
Application: A065010 | Product #001
Applicant: X GEN PHARMACEUTICALS INC
Approved: May 23, 2002 | RLD: No | RS: No | Type: DISCN